FAERS Safety Report 11051020 (Version 1)
Quarter: 2015Q2

REPORT INFORMATION
  Report Type: Spontaneous
  Country: BR (occurrence: BR)
  Receive Date: 20150421
  Receipt Date: 20150421
  Transmission Date: 20150821
  Serious: Yes (Hospitalization, Other)
  Sender: FDA-Public Use
  Company Number: BR-ASTRAZENECA-2015SE35072

PATIENT
  Age: 67 Year
  Sex: Male
  Weight: 80 kg

DRUGS (8)
  1. SEROQUEL [Suspect]
     Active Substance: QUETIAPINE FUMARATE
     Indication: SLEEP DISORDER
     Route: 048
     Dates: start: 201412, end: 201412
  2. SEROQUEL [Suspect]
     Active Substance: QUETIAPINE FUMARATE
     Indication: ABNORMAL BEHAVIOUR
     Route: 048
     Dates: start: 201412, end: 201412
  3. TAMSULOSIN [Concomitant]
     Active Substance: TAMSULOSIN
     Indication: PROSTATE EXAMINATION ABNORMAL
     Route: 048
  4. HIDANTAL [Concomitant]
     Active Substance: PHENYTOIN SODIUM
     Indication: CONFUSIONAL STATE
  5. PREDNISONE. [Concomitant]
     Active Substance: PREDNISONE
     Indication: COUGH
     Dosage: AS REQUIRED
     Route: 048
  6. SEROQUEL [Suspect]
     Active Substance: QUETIAPINE FUMARATE
     Indication: ABNORMAL BEHAVIOUR
     Route: 048
     Dates: end: 201412
  7. AMLODIPINE BESILATE [Concomitant]
     Active Substance: AMLODIPINE BESYLATE
     Indication: BLOOD PRESSURE ABNORMAL
     Route: 048
  8. SEROQUEL [Suspect]
     Active Substance: QUETIAPINE FUMARATE
     Indication: SLEEP DISORDER
     Route: 048
     Dates: end: 201412

REACTIONS (6)
  - Aggression [Recovered/Resolved]
  - Sleep disorder [Recovered/Resolved]
  - Malaise [Unknown]
  - Nausea [Unknown]
  - Arterial occlusive disease [Recovered/Resolved]
  - Prostatic disorder [Recovered/Resolved]

NARRATIVE: CASE EVENT DATE: 2014
